FAERS Safety Report 17366508 (Version 1)
Quarter: 2020Q1

REPORT INFORMATION
  Report Type: Report from Study
  Country: CA (occurrence: CA)
  Receive Date: 20200204
  Receipt Date: 20200204
  Transmission Date: 20200409
  Serious: Yes (Hospitalization, Other)
  Sender: FDA-Public Use
  Company Number: CA-MYLANLABS-2019M1123902

PATIENT
  Age: 53 Year
  Sex: Male
  Weight: 161.5 kg

DRUGS (5)
  1. CLOZAPINE. [Suspect]
     Active Substance: CLOZAPINE
     Dosage: 150 MILLIGRAM, QD
     Route: 048
     Dates: start: 2019
  2. CLOZAPINE. [Suspect]
     Active Substance: CLOZAPINE
     Indication: SCHIZOPHRENIA
     Dosage: 25 MILLIGRAM
     Route: 048
     Dates: start: 20191118
  3. ATENOLOL. [Suspect]
     Active Substance: ATENOLOL
     Dosage: 50 MILLIGRAM
     Route: 048
  4. CLOZAPINE. [Suspect]
     Active Substance: CLOZAPINE
     Dosage: UNK
     Dates: start: 20191126, end: 2019
  5. CLOPIXOL                           /00876702/ [Suspect]
     Active Substance: ZUCLOPENTHIXOL ACETATE
     Dosage: 400 MILLIGRAM, Q2W

REACTIONS (11)
  - Tachycardia [Unknown]
  - Myocarditis [Unknown]
  - Nausea [Unknown]
  - Troponin increased [Unknown]
  - Constipation [Unknown]
  - Malaise [Unknown]
  - Vomiting [Unknown]
  - Blood creatine phosphokinase increased [Unknown]
  - Cardiomyopathy [Unknown]
  - Fatigue [Unknown]
  - Pyrexia [Unknown]

NARRATIVE: CASE EVENT DATE: 2019
